FAERS Safety Report 4759182-4 (Version None)
Quarter: 2005Q3

REPORT INFORMATION
  Report Type: 
  Country: None (occurrence: None)
  Receive Date: 20050901
  Receipt Date: 20050623
  Transmission Date: 20060218
  Serious: Yes (Other)
  Sender: FDA-Public Use
  Company Number: 2005UW09643

PATIENT
  Age: 58 Year
  Sex: Female
  Weight: 77.1 kg

DRUGS (9)
  1. ARIMIDEX [Suspect]
     Indication: BREAST CANCER
     Route: 048
     Dates: start: 20050301
  2. OXYCONTIN [Concomitant]
     Indication: PAIN
  3. PROVIGIL [Concomitant]
     Indication: FATIGUE
  4. LIBRAX [Concomitant]
     Indication: RECTAL SPASM
  5. SANCTORA [Concomitant]
     Indication: HYPERTONIC BLADDER
  6. LEXAPRO [Concomitant]
  7. ZANAFLEX [Concomitant]
  8. LIDODERM [Concomitant]
     Dosage: PATCHES
  9. ARTHROTEC [Concomitant]

REACTIONS (11)
  - ARTHRALGIA [None]
  - BACK PAIN [None]
  - BONE PAIN [None]
  - FIBROMYALGIA [None]
  - GAIT DISTURBANCE [None]
  - JOINT STIFFNESS [None]
  - JOINT SWELLING [None]
  - MUSCULOSKELETAL PAIN [None]
  - MYALGIA [None]
  - PAIN IN EXTREMITY [None]
  - RHEUMATOID ARTHRITIS [None]
